FAERS Safety Report 12933882 (Version 1)
Quarter: 2016Q4

REPORT INFORMATION
  Report Type: Report from Study
  Country: CA (occurrence: CA)
  Receive Date: 20161111
  Receipt Date: 20161111
  Transmission Date: 20170207
  Serious: Yes (Life-Threatening, Other)
  Sender: FDA-Public Use
  Company Number: CA-JNJFOC-20161104280

PATIENT
  Age: 66 Year
  Sex: Male
  Weight: 123 kg

DRUGS (1)
  1. REMICADE [Suspect]
     Active Substance: INFLIXIMAB
     Indication: PSORIATIC ARTHROPATHY
     Route: 042
     Dates: start: 2008, end: 201607

REACTIONS (6)
  - Product use issue [Unknown]
  - Oesophageal carcinoma [Unknown]
  - Toxic epidermal necrolysis [Unknown]
  - Off label use [Unknown]
  - Adverse drug reaction [Unknown]
  - Post procedural complication [Unknown]

NARRATIVE: CASE EVENT DATE: 2008
